FAERS Safety Report 7231812-7 (Version None)
Quarter: 2011Q1

REPORT INFORMATION
  Report Type: 
  Country: None (occurrence: None)
  Receive Date: 20110118
  Receipt Date: 20110110
  Transmission Date: 20110831
  Serious: Yes (Hospitalization)
  Sender: FDA-Public Use
  Company Number: US-BAXTER-2010BH027523

PATIENT
  Age: 30 Year
  Sex: Female
  Weight: 72 kg

DRUGS (1)
  1. MORPHINE SULFATE [Suspect]
     Indication: SURGERY
     Route: 042

REACTIONS (5)
  - HALLUCINATION [None]
  - DOCUMENTED HYPERSENSITIVITY TO ADMINISTERED DRUG [None]
  - VISUAL IMPAIRMENT [None]
  - THROAT TIGHTNESS [None]
  - RASH [None]
